FAERS Safety Report 9113346 (Version 1)
Quarter: 2013Q1

REPORT INFORMATION
  Report Type: Spontaneous
  Country: US (occurrence: US)
  Receive Date: 20130211
  Receipt Date: 20130211
  Transmission Date: 20140127
  Serious: No
  Sender: FDA-Public Use
  Company Number: US-009507513-1301USA014324

PATIENT
  Age: 75 Year
  Sex: Male

DRUGS (4)
  1. INVANZ [Suspect]
     Dosage: 1 G EVERY 24 HOURS FOR 14 ADMINSTRATIONS
     Route: 042
     Dates: start: 20130102, end: 20130115
  2. DIOVAN [Concomitant]
  3. LIPITOR [Concomitant]
  4. FLOMAX (TAMSULOSIN HYDROCHLORIDE) [Concomitant]

REACTIONS (4)
  - Fatigue [Not Recovered/Not Resolved]
  - Feeling abnormal [Not Recovered/Not Resolved]
  - Increased upper airway secretion [Unknown]
  - Dyspepsia [Unknown]
